FAERS Safety Report 25068738 (Version 1)
Quarter: 2025Q1

REPORT INFORMATION
  Report Type: Spontaneous
  Country: US (occurrence: US)
  Receive Date: 20250312
  Receipt Date: 20250312
  Transmission Date: 20250408
  Serious: Yes (Other)
  Sender: SANOFI AVENTIS
  Company Number: US-SA-2025SA071251

PATIENT
  Age: 37 Year
  Sex: Female

DRUGS (1)
  1. KEVZARA [Suspect]
     Active Substance: SARILUMAB
     Indication: Polychondritis
     Dosage: 200 MG, QOW
     Route: 058
     Dates: start: 20250228

REACTIONS (6)
  - Polychondritis [Unknown]
  - Secretion discharge [Unknown]
  - Anxiety [Unknown]
  - Rhinorrhoea [Unknown]
  - Palpitations [Unknown]
  - Product use in unapproved indication [Unknown]

NARRATIVE: CASE EVENT DATE: 20250101
